FAERS Safety Report 6081020-0 (Version None)
Quarter: 2009Q1

REPORT INFORMATION
  Report Type: 
  Country: None (occurrence: None)
  Receive Date: 20090217
  Receipt Date: 20090206
  Transmission Date: 20090719
  Serious: Yes (Other)
  Sender: FDA-Public Use
  Company Number: PHHY2009JP04633

PATIENT
  Sex: Female
  Weight: 1.06 kg

DRUGS (2)
  1. REGITINE [Suspect]
     Indication: PHAEOCHROMOCYTOMA
     Dosage: MATERNAL DOSE: 150-200 MG
     Route: 064
  2. ONOACT [Suspect]
     Dosage: MATERNAL DOSE: 200MG-2G
     Route: 064

REACTIONS (2)
  - DRUG EXPOSURE DURING PREGNANCY [None]
  - PREMATURE BABY [None]
